FAERS Safety Report 6693603-5 (Version None)
Quarter: 2010Q2

REPORT INFORMATION
  Report Type: 
  Country: None (occurrence: None)
  Receive Date: 20100423
  Receipt Date: 20100414
  Transmission Date: 20101027
  Serious: No
  Sender: FDA-Public Use
  Company Number: 2009BI041198

PATIENT
  Age: 49 Year
  Sex: Female

DRUGS (1)
  1. TYSABRI [Suspect]
     Indication: MULTIPLE SCLEROSIS
     Route: 042
     Dates: start: 20070329

REACTIONS (6)
  - ASTHENIA [None]
  - BLOOD GLUCOSE FLUCTUATION [None]
  - CLUMSINESS [None]
  - DIABETES MELLITUS [None]
  - FATIGUE [None]
  - GAIT DISTURBANCE [None]
